FAERS Safety Report 24189511 (Version 1)
Quarter: 2024Q3

REPORT INFORMATION
  Report Type: Spontaneous
  Country: CA (occurrence: CA)
  Receive Date: 20240808
  Receipt Date: 20240808
  Transmission Date: 20241016
  Serious: Yes (Hospitalization, Other)
  Sender: PFIZER
  Company Number: CA-PFIZER INC-202400230339

PATIENT
  Age: 73 Year
  Sex: Female

DRUGS (3)
  1. DOXORUBICIN HYDROCHLORIDE [Suspect]
     Active Substance: DOXORUBICIN HYDROCHLORIDE
     Indication: Breast cancer female
     Dosage: UNK, 1 EVERY 2 WEEKS
     Route: 042
  2. CYCLOPHOSPHAMIDE [Suspect]
     Active Substance: CYCLOPHOSPHAMIDE
     Indication: Breast cancer female
     Dosage: UNK, 1 EVERY 2 WEEKS
     Route: 042
  3. FILGRASTIM [Suspect]
     Active Substance: FILGRASTIM
     Indication: Chemotherapy
     Dosage: UNK
     Route: 058

REACTIONS (6)
  - Dizziness [Recovering/Resolving]
  - Dysphagia [Recovering/Resolving]
  - Hypersensitivity pneumonitis [Recovering/Resolving]
  - Pleural effusion [Recovering/Resolving]
  - Product quality issue [Recovering/Resolving]
  - Rash [Recovering/Resolving]
